FAERS Safety Report 5346558-X (Version None)
Quarter: 2007Q2

REPORT INFORMATION
  Report Type: 
  Country: None (occurrence: None)
  Receive Date: 20070605
  Receipt Date: 20070531
  Transmission Date: 20071010
  Serious: Yes (Life-Threatening, Hospitalization)
  Sender: FDA-Public Use
  Company Number: RU-MERCK-0706RUS00001

PATIENT
  Age: 69 Year
  Sex: Male

DRUGS (6)
  1. ZOCOR [Suspect]
     Indication: MYOCARDIAL ISCHAEMIA
     Route: 048
  2. ZOCOR [Suspect]
     Indication: ANGINA UNSTABLE
     Route: 048
  3. BISOPROLOL FUMARATE [Concomitant]
     Indication: MYOCARDIAL ISCHAEMIA
     Route: 065
  4. BISOPROLOL FUMARATE [Concomitant]
     Indication: ANGINA UNSTABLE
     Route: 065
  5. MAGNESIUM OXIDE [Concomitant]
     Indication: MYOCARDIAL ISCHAEMIA
     Route: 065
  6. MAGNESIUM OXIDE [Concomitant]
     Indication: ANGINA UNSTABLE
     Route: 065

REACTIONS (1)
  - ANGINA UNSTABLE [None]
